FAERS Safety Report 13658839 (Version 1)
Quarter: 2017Q2

REPORT INFORMATION
  Report Type: Spontaneous
  Country: US (occurrence: US)
  Receive Date: 20170616
  Receipt Date: 20170616
  Transmission Date: 20170830
  Serious: Yes (Hospitalization, Other)
  Sender: FDA-Public Use
  Company Number: US-TEVA-777718USA

PATIENT
  Sex: Female

DRUGS (1)
  1. CLOPIDOGREL [Suspect]
     Active Substance: CLOPIDOGREL BISULFATE
     Route: 065
     Dates: start: 2017

REACTIONS (5)
  - Cerebrovascular accident [Unknown]
  - Aphasia [Unknown]
  - Malaise [Unknown]
  - Product substitution issue [Unknown]
  - Abasia [Unknown]

NARRATIVE: CASE EVENT DATE: 2017
